FAERS Safety Report 26196101 (Version 1)
Quarter: 2025Q4

REPORT INFORMATION
  Report Type: Report from Study
  Country: EU (occurrence: EU)
  Receive Date: 20251224
  Receipt Date: 20251224
  Transmission Date: 20260117
  Serious: Yes (Life-Threatening, Hospitalization, Other)
  Sender: SANOFI AVENTIS
  Company Number: EU-SA-2024SA268883

PATIENT
  Age: 62 Year
  Sex: Male
  Weight: 64 kg

DRUGS (32)
  1. BELUMOSUDIL MESYLATE [Suspect]
     Active Substance: BELUMOSUDIL MESYLATE
     Indication: Chronic graft versus host disease
     Dosage: 200 MG, QD
     Route: 048
     Dates: start: 20240807, end: 20250808
  2. CYCLOSPORINE [Concomitant]
     Active Substance: CYCLOSPORINE
     Indication: Chronic graft versus host disease
     Dosage: 2 DF, BID (20 MG 1-0-1)
     Route: 048
  3. METHYLPREDNISOLONE [Concomitant]
     Active Substance: METHYLPREDNISOLONE
     Indication: Chronic graft versus host disease
     Dosage: 16 MG, QD
     Route: 048
     Dates: start: 202312
  4. METHYLPREDNISOLONE [Concomitant]
     Active Substance: METHYLPREDNISOLONE
     Dosage: 2MG, 1-0-0
  5. METHYLPREDNISOLONE [Concomitant]
     Active Substance: METHYLPREDNISOLONE
     Dosage: 64 MG, QD
     Route: 048
  6. METHYLPREDNISOLONE [Concomitant]
     Active Substance: METHYLPREDNISOLONE
     Dosage: 1MG/KG
     Dates: start: 20250809
  7. METHYLPREDNISOLONE [Concomitant]
     Active Substance: METHYLPREDNISOLONE
     Dosage: 1MG/KG
     Dates: start: 20250809
  8. METHYLPREDNISOLONE [Concomitant]
     Active Substance: METHYLPREDNISOLONE
     Dosage: 2MG, 1-0-0
  9. ACYCLOVIR [Concomitant]
     Active Substance: ACYCLOVIR
     Dosage: 1 DF, QD
  10. AMLODIPINE [Concomitant]
     Active Substance: AMLODIPINE BESYLATE
     Dosage: 1 DF, BID
  11. BISOPROLOL FUMARATE [Concomitant]
     Active Substance: BISOPROLOL FUMARATE
     Dosage: 1 DF, QD
  12. BUDESONIDE [Concomitant]
     Active Substance: BUDESONIDE
     Dosage: 1 DF, TID (1-1-1 )
  13. CYCLOSPORINE [Concomitant]
     Active Substance: CYCLOSPORINE
     Dosage: 1 DF, BID (1-0-1 )
  14. CITALOPRAM [Concomitant]
     Active Substance: CITALOPRAM
     Dosage: 0.5 DF, QD
  15. DUTASTERIDE\TAMSULOSIN [Concomitant]
     Active Substance: DUTASTERIDE\TAMSULOSIN
     Dosage: 1 DF, QD
  16. FEBUXOSTAT [Concomitant]
     Active Substance: FEBUXOSTAT
     Dosage: 1 DF, QD
  17. ARTELAC EDO [Concomitant]
     Dosage: 1 DF, TID (1-1-1 PIPETTE)
  18. INSULIN GLARGINE [Concomitant]
     Active Substance: INSULIN GLARGINE
     Dosage: UNK; 10-0-20 U.
  19. ACTRAPID [Concomitant]
     Active Substance: INSULIN HUMAN
     Dosage: UNK
  20. GLANDOMED [Concomitant]
     Dosage: 1 ML, TID 1-1-1 ML
  21. MAGNESIUM VERLA [MAGNESIUM] [Concomitant]
     Dosage: 1 DF, QD
  22. URSODIOL [Concomitant]
     Active Substance: URSODIOL
     Dosage: 1 DF, TID
  23. COTRIM [Concomitant]
     Active Substance: SULFAMETHOXAZOLE\TRIMETHOPRIM
     Dosage: 1 DF, QD; PAUSE
  24. CHOLECALCIFEROL [Concomitant]
     Active Substance: CHOLECALCIFEROL
     Dosage: 1 DF, QD
  25. HYALURONATE SODIUM [Concomitant]
     Active Substance: HYALURONATE SODIUM
     Dosage: 1 DROP, QH
  26. ZOLPIDEM TARTRATE [Concomitant]
     Active Substance: ZOLPIDEM TARTRATE
     Dosage: UNK (AS NEEDED, MAX. 1 TABLET/DAY, ED 1 TABLET, MIN. 1D INTERVAL)
  27. PANTOZOL [Concomitant]
     Active Substance: PANTOPRAZOLE SODIUM
     Dosage: 1 DF, QD ((1-0-0 TABLET) PAUSED)
  28. CANDESARTAN [Concomitant]
     Active Substance: CANDESARTAN
     Dosage: 1 DF, BID
  29. LERCANIDIPINE HYDROCHLORIDE [Concomitant]
     Active Substance: LERCANIDIPINE HYDROCHLORIDE
     Dosage: 1 DF, Q6H
  30. TORSEMIDE [Concomitant]
     Active Substance: TORSEMIDE
     Dosage: 0.5 DF, QD
  31. LANTUS [Concomitant]
     Active Substance: INSULIN GLARGINE
     Route: 058
  32. FEBUXOSTAT [Concomitant]
     Active Substance: FEBUXOSTAT
     Dosage: 1 DF, QD

REACTIONS (10)
  - Liver disorder [Recovered/Resolved]
  - Hypertension [Recovered/Resolved]
  - Calculus urinary [Recovering/Resolving]
  - Cholecystitis [Not Recovered/Not Resolved]
  - Nephrolithiasis [Recovering/Resolving]
  - Acute kidney injury [Recovering/Resolving]
  - Hydronephrosis [Recovered/Resolved]
  - Urosepsis [Recovered/Resolved]
  - Blood creatinine increased [Recovered/Resolved]
  - Hyperglycaemia [Recovering/Resolving]

NARRATIVE: CASE EVENT DATE: 20240813
